FAERS Safety Report 21471105 (Version 2)
Quarter: 2022Q4

REPORT INFORMATION
  Report Type: Spontaneous
  Country: GB (occurrence: GB)
  Receive Date: 20221018
  Receipt Date: 20221020
  Transmission Date: 20230113
  Serious: Yes (Death, Other)
  Sender: FDA-Public Use
  Company Number: GB-ADVANZ PHARMA-202209006291

PATIENT
  Sex: Male

DRUGS (1)
  1. OCALIVA [Suspect]
     Active Substance: OBETICHOLIC ACID
     Dosage: UNK, QOD (ALTERNATE)
     Route: 065

REACTIONS (1)
  - Death [Fatal]
